FAERS Safety Report 5448213-4 (Version None)
Quarter: 2007Q3

REPORT INFORMATION
  Report Type: 
  Country: None (occurrence: None)
  Receive Date: 20070906
  Receipt Date: 20070821
  Transmission Date: 20080115
  Serious: Yes (Life-Threatening, Hospitalization, Other)
  Sender: FDA-Public Use
  Company Number: 2006RR-03958

PATIENT
  Age: 64 Year
  Sex: Female

DRUGS (9)
  1. SOTALOL (SOTALOL) UNKNOWN [Suspect]
  2. VERAPAMIL [Suspect]
     Indication: ATRIAL FIBRILLATION
     Dosage: 80 MG, TID
  3. SECURON (SECURON) [Suspect]
     Indication: ATRIAL FIBRILLATION
     Dosage: 80 MG
  4. DIGOXIN [Suspect]
     Indication: ATRIAL FIBRILLATION
     Dosage: 80 MG
  5. AMILORIDE (AMILORIDE) [Concomitant]
  6. FUROSEMIDE [Concomitant]
  7. PERINDOPRIL ERBUMINE [Concomitant]
  8. WARFARIN SODIUM [Concomitant]
  9. FRUMIL (FRUMIL) [Concomitant]

REACTIONS (16)
  - ABDOMINAL TENDERNESS [None]
  - ATRIAL FIBRILLATION [None]
  - BRADYCARDIA [None]
  - CARDIAC FAILURE [None]
  - CARDIOACTIVE DRUG LEVEL BELOW THERAPEUTIC [None]
  - CARDIOMEGALY [None]
  - DEPRESSED LEVEL OF CONSCIOUSNESS [None]
  - DRUG INTERACTION [None]
  - HYPOTENSION [None]
  - IATROGENIC INJURY [None]
  - LIVEDO RETICULARIS [None]
  - LIVER FUNCTION TEST ABNORMAL [None]
  - METABOLIC ACIDOSIS [None]
  - PULSE ABSENT [None]
  - RENAL FAILURE [None]
  - RENAL IMPAIRMENT [None]
